FAERS Safety Report 7479408-6 (Version None)
Quarter: 2011Q2

REPORT INFORMATION
  Report Type: 
  Country: None (occurrence: None)
  Receive Date: 20110513
  Receipt Date: 20110512
  Transmission Date: 20111010
  Serious: Yes (Other)
  Sender: FDA-Public Use
  Company Number: VE-PFIZER INC-2011094155

PATIENT
  Age: 82 Year
  Sex: Female

DRUGS (3)
  1. DILATREND [Concomitant]
     Indication: HYPERTENSION
     Dosage: 6.25 MG, 1X/DAY
     Route: 048
  2. LIPITOR [Suspect]
     Indication: HYPERCHOLESTEROLAEMIA
     Dosage: 10 MG, 1X/DAY
     Route: 048
     Dates: start: 20100101
  3. TELMISARTAN [Concomitant]
     Indication: HYPERTENSION
     Dosage: 40/12.5 MG, 1X/DAY
     Route: 048

REACTIONS (1)
  - SURGERY [None]
